FAERS Safety Report 8123251 (Version 2)
Quarter: 2012Q4

REPORT INFORMATION
  Report Type: 
  Country: SE (occurrence: SE)
  Receive Date: 20110907
  Receipt Date: 20120905
  Transmission Date: 20130627
  Serious: Yes (Death, Hospitalization, Other)
  Sender: FDA-Public Use
  Company Number: SE-RANBAXY-2011RR-47290

PATIENT
  Age: 50 Year
  Sex: Male
  Weight: 85 kg

DRUGS (4)
  1. METRONIDAZOLE [Suspect]
     Indication: APPENDICEAL ABSCESS
     Dosage: 1 g/day
     Route: 065
  2. METRONIDAZOLE [Suspect]
     Dosage: 400 mg, tid
     Route: 048
  3. CIPROFLOXACIN [Suspect]
     Indication: APPENDICEAL ABSCESS
     Dosage: 500 mg, bid
     Route: 065
  4. CEFOTAXIME [Concomitant]
     Indication: APPENDICEAL ABSCESS
     Dosage: 1 g, tid
     Route: 042

REACTIONS (2)
  - Encephalopathy [Recovered/Resolved]
  - Deafness [Recovering/Resolving]
